FAERS Safety Report 7347347-7 (Version None)
Quarter: 2011Q1

REPORT INFORMATION
  Report Type: 
  Country: None (occurrence: None)
  Receive Date: 20110303
  Receipt Date: 20110218
  Transmission Date: 20110831
  Serious: Yes (Other)
  Sender: FDA-Public Use
  Company Number: 023409

PATIENT
  Sex: Female
  Weight: 69 kg

DRUGS (4)
  1. TRILEPTAL [Concomitant]
  2. OXCARBAZEPINE [Concomitant]
  3. KLONOPIN [Concomitant]
  4. LACOSAMIDE [Suspect]
     Indication: COMPLEX PARTIAL SEIZURES
     Dosage: (ORAL) (100 MG BID ORAL)
     Route: 048
     Dates: start: 20090728

REACTIONS (2)
  - STATUS EPILEPTICUS [None]
  - WEIGHT INCREASED [None]
